FAERS Safety Report 11202661 (Version 1)
Quarter: 2015Q2

REPORT INFORMATION
  Report Type: Spontaneous
  Country: FR (occurrence: FR)
  Receive Date: 20150619
  Receipt Date: 20150619
  Transmission Date: 20150821
  Serious: Yes (Hospitalization)
  Sender: FDA-Public Use
  Company Number: FR-HOSPIRA-2904391

PATIENT
  Age: 43 Year
  Sex: Female

DRUGS (6)
  1. PACLITAXEL. [Concomitant]
     Active Substance: PACLITAXEL
     Indication: OVARIAN EPITHELIAL CANCER
     Dates: start: 20150227
  2. PACLITAXEL. [Concomitant]
     Active Substance: PACLITAXEL
     Indication: OVARIAN EPITHELIAL CANCER
     Dates: start: 20150227
  3. PACLITAXEL. [Concomitant]
     Active Substance: PACLITAXEL
     Indication: METASTASES TO PERITONEUM
     Dates: start: 20150227
  4. CARBOPLATIN HOSPIRA [Suspect]
     Active Substance: CARBOPLATIN
     Indication: OVARIAN CANCER METASTATIC
     Route: 041
     Dates: start: 20150212
  5. PACLITAXEL. [Concomitant]
     Active Substance: PACLITAXEL
     Indication: METASTASES TO PERITONEUM
     Dates: start: 20150227
  6. CARBOPLATIN HOSPIRA [Suspect]
     Active Substance: CARBOPLATIN
     Indication: OVARIAN CANCER METASTATIC
     Route: 041
     Dates: start: 20150120, end: 20150120

REACTIONS (10)
  - Oxygen saturation decreased [Recovered/Resolved]
  - Sense of oppression [Unknown]
  - Palmar erythema [Recovered/Resolved]
  - Erythema [Recovered/Resolved]
  - Swelling face [Unknown]
  - Hypoaesthesia [Unknown]
  - Dyspnoea [Recovered/Resolved]
  - Rash [Unknown]
  - Plantar erythema [Recovered/Resolved]
  - Paraesthesia [Unknown]

NARRATIVE: CASE EVENT DATE: 20150120
